FAERS Safety Report 23052593 (Version 1)
Quarter: 2023Q4

REPORT INFORMATION
  Report Type: Report from Study
  Country: US (occurrence: US)
  Receive Date: 20231011
  Receipt Date: 20231011
  Transmission Date: 20240110
  Serious: Yes (Other)
  Sender: FDA-Public Use
  Company Number: US-ABBVIE-5443454

PATIENT
  Age: 52 Year
  Sex: Female

DRUGS (3)
  1. RINVOQ [Suspect]
     Active Substance: UPADACITINIB
     Indication: Rheumatoid arthritis
     Dosage: EXTENDED RELEASED, ?STRENGTH: 15MG?EVERY OTHER NIGHT
     Route: 048
     Dates: start: 20230726, end: 20230816
  2. RINVOQ [Suspect]
     Active Substance: UPADACITINIB
     Indication: Rheumatoid arthritis
     Dosage: EXTENDED RELEASED, ?STRENGTH: 15MG, LAST ADMIN DATE: SEP 2023
     Route: 048
     Dates: start: 20230913
  3. RINVOQ [Suspect]
     Active Substance: UPADACITINIB
     Indication: Rheumatoid arthritis
     Dosage: EXTENDED RELEASED, ?STRENGTH: 15MG
     Route: 048
     Dates: start: 20220919

REACTIONS (5)
  - Hysterectomy [Unknown]
  - Peripheral swelling [Unknown]
  - Arthralgia [Unknown]
  - Scleral disorder [Unknown]
  - Arthralgia [Unknown]

NARRATIVE: CASE EVENT DATE: 20230919
